FAERS Safety Report 7994257-8 (Version None)
Quarter: 2011Q4

REPORT INFORMATION
  Report Type: 
  Country: None (occurrence: None)
  Receive Date: 20111220
  Receipt Date: 20111213
  Transmission Date: 20120403
  Serious: Yes (Death)
  Sender: FDA-Public Use
  Company Number: DE-UCBSA-038282

PATIENT
  Age: 52 Year
  Sex: Male
  Weight: 63 kg

DRUGS (4)
  1. GABITRIL [Suspect]
     Indication: EPILEPSY
     Route: 048
  2. TEGRETOL-XR [Suspect]
     Indication: EPILEPSY
     Dosage: FREQUENCY :2.5 TIMES EVERY ONE DAY OVER SEVERAL YEARS
     Route: 048
  3. KEPPRA [Suspect]
     Indication: EPILEPSY
     Dosage: OVER SEVERAL YEARS
     Route: 048
  4. NO CONCOMITANT MEDICATION [Concomitant]

REACTIONS (4)
  - MULTI-ORGAN FAILURE [None]
  - STATUS EPILEPTICUS [None]
  - DRUG INEFFECTIVE [None]
  - PNEUMONIA ASPIRATION [None]
